FAERS Safety Report 8462108-3 (Version None)
Quarter: 2012Q2

REPORT INFORMATION
  Report Type: 
  Country: None (occurrence: None)
  Receive Date: 20120625
  Receipt Date: 20120625
  Transmission Date: 20120825
  Serious: Yes (Death)
  Sender: FDA-Public Use
  Company Number: FR-PFIZER INC-2010US-30856

PATIENT
  Age: 43 Year
  Sex: Male

DRUGS (7)
  1. VASTAREL [Suspect]
     Dosage: UNK
     Route: 065
  2. VIAGRA [Suspect]
     Indication: CARDIOVASCULAR DISORDER
     Dosage: 25 MG, 1X/DAY
     Route: 048
  3. VIAGRA [Suspect]
     Indication: ERECTILE DYSFUNCTION
  4. LEXOMIL [Concomitant]
     Route: 065
  5. NITROGLYCERIN [Concomitant]
     Route: 065
  6. YOHIMBINE [Concomitant]
     Dosage: UNK
     Route: 065
  7. VERAPAMIL HCL [Suspect]
     Indication: CARDIOVASCULAR DISORDER
     Dosage: UNK
     Route: 065

REACTIONS (4)
  - DRUG INTERACTION [None]
  - CARDIOMEGALY [None]
  - ARTERIOSCLEROSIS CORONARY ARTERY [None]
  - AORTIC ARTERIOSCLEROSIS [None]
